FAERS Safety Report 10009038 (Version 1)
Quarter: 2014Q1

REPORT INFORMATION
  Report Type: Spontaneous
  Country: US (occurrence: US)
  Receive Date: 20140313
  Receipt Date: 20140313
  Transmission Date: 20141002
  Serious: No
  Sender: FDA-Public Use
  Company Number: US-INCYTE CORPORATION-2012IN001254

PATIENT
  Age: 84 Year
  Sex: Male

DRUGS (6)
  1. JAKAFI [Suspect]
     Indication: MYELOFIBROSIS
     Dosage: 15 MG, BID
  2. ACCUPRIL [Concomitant]
  3. ARANESP [Concomitant]
  4. AMIODARONE HCL [Concomitant]
  5. METOPROLOL [Concomitant]
  6. PLAVIX [Concomitant]

REACTIONS (1)
  - Nasopharyngitis [Unknown]
